FAERS Safety Report 11822315 (Version 4)
Quarter: 2016Q4

REPORT INFORMATION
  Report Type: Spontaneous
  Country: US (occurrence: US)
  Receive Date: 20151210
  Receipt Date: 20161017
  Transmission Date: 20170206
  Serious: No
  Sender: FDA-Public Use
  Company Number: US-JNJFOC-20150619236

PATIENT
  Sex: Male

DRUGS (6)
  1. ZOFRAN [Concomitant]
     Active Substance: ONDANSETRON HYDROCHLORIDE
     Dates: start: 20120524
  2. TRAMADOL HCL [Concomitant]
     Active Substance: TRAMADOL HYDROCHLORIDE
  3. PROCHLORPERAZINE. [Concomitant]
     Active Substance: PROCHLORPERAZINE
     Route: 048
     Dates: start: 20120524
  4. ATIVAN [Concomitant]
     Active Substance: LORAZEPAM
     Route: 048
  5. LYRICA [Concomitant]
     Active Substance: PREGABALIN
  6. IMBRUVICA [Suspect]
     Active Substance: IBRUTINIB
     Indication: CHRONIC LYMPHOCYTIC LEUKAEMIA
     Route: 048
     Dates: start: 20141202

REACTIONS (15)
  - Blood count abnormal [Not Recovered/Not Resolved]
  - Carpal tunnel syndrome [Unknown]
  - Muscle spasms [Recovering/Resolving]
  - Neuropathy peripheral [Unknown]
  - Muscle atrophy [Unknown]
  - Lymphocyte count increased [Unknown]
  - Arthralgia [Unknown]
  - Nausea [Unknown]
  - Dermal cyst [Unknown]
  - White blood cell count decreased [Recovering/Resolving]
  - Diarrhoea [Unknown]
  - Constipation [Unknown]
  - Vision blurred [Unknown]
  - Dizziness [Recovering/Resolving]
  - Gingival pain [Unknown]
